FAERS Safety Report 17910425 (Version 1)
Quarter: 2020Q2

REPORT INFORMATION
  Report Type: Spontaneous
  Country: US (occurrence: US)
  Receive Date: 20200618
  Receipt Date: 20200618
  Transmission Date: 20200714
  Serious: No
  Sender: FDA-Public Use
  Company Number: US-009507513-2006USA005614

PATIENT
  Sex: Male

DRUGS (1)
  1. PREGNYL [Suspect]
     Active Substance: CHORIOGONADOTROPIN ALFA
     Indication: HYPOPITUITARISM
     Dosage: 300 UNITS, 3 TIMES A WEEK
     Route: 030

REACTIONS (5)
  - Product preparation issue [Unknown]
  - No adverse event [Unknown]
  - Product dose omission [Unknown]
  - Product use in unapproved indication [Unknown]
  - Wrong dose [Unknown]
